FAERS Safety Report 8288141-2 (Version None)
Quarter: 2012Q2

REPORT INFORMATION
  Report Type: 
  Country: None (occurrence: None)
  Receive Date: 20120416
  Receipt Date: 20120405
  Transmission Date: 20120825
  Serious: Yes (Other)
  Sender: FDA-Public Use
  Company Number: CN-BAYER-2012-032945

PATIENT
  Age: 81 Year
  Sex: Male

DRUGS (1)
  1. MAGNEVIST [Suspect]
     Indication: NUCLEAR MAGNETIC RESONANCE IMAGING
     Dosage: UNK UNK, ONCE
     Route: 042
     Dates: start: 20110720, end: 20110720

REACTIONS (8)
  - SKIN SWELLING [None]
  - GRIP STRENGTH DECREASED [None]
  - HAEMORRHAGE SUBCUTANEOUS [None]
  - SKIN DISCOLOURATION [None]
  - FEELING HOT [None]
  - DEEP VEIN THROMBOSIS [None]
  - PAIN IN EXTREMITY [None]
  - HYPOAESTHESIA [None]
